FAERS Safety Report 10314557 (Version 1)
Quarter: 2014Q3

REPORT INFORMATION
  Report Type: Spontaneous
  Country: GB (occurrence: GB)
  Receive Date: 20140718
  Receipt Date: 20140718
  Transmission Date: 20150326
  Serious: Yes (Other)
  Sender: FDA-Public Use
  Company Number: GB-BAUSCH-BL-2014-003264

PATIENT
  Age: 38 Year
  Sex: Female
  Weight: 72.48 kg

DRUGS (1)
  1. PREDNISOLONE. [Suspect]
     Active Substance: PREDNISOLONE
     Indication: ANAPHYLAXIS TREATMENT
     Route: 048
     Dates: start: 20140622

REACTIONS (3)
  - Anxiety [Recovering/Resolving]
  - Affect lability [Recovering/Resolving]
  - Nervousness [Recovering/Resolving]

NARRATIVE: CASE EVENT DATE: 20140622
